FAERS Safety Report 20941319 (Version 1)
Quarter: 2022Q2

REPORT INFORMATION
  Report Type: Spontaneous
  Country: SE (occurrence: SE)
  Receive Date: 20220609
  Receipt Date: 20220609
  Transmission Date: 20220721
  Serious: Yes (Life-Threatening)
  Sender: FDA-Public Use
  Company Number: None

PATIENT
  Age: 2 Day
  Sex: Male
  Weight: 2 kg

DRUGS (5)
  1. PRIVIGEN [Suspect]
     Active Substance: HUMAN IMMUNOGLOBULIN G
     Indication: Hyperbilirubinaemia
     Dosage: 10.5 MILLILITER, TOT
     Route: 042
     Dates: start: 20220428, end: 20220428
  2. DEXTROSE [Concomitant]
     Active Substance: DEXTROSE
     Dosage: 2 MILLILITER, QH (2ML/H)
     Route: 042
     Dates: start: 20220427, end: 20220430
  3. CEFOTAXIME [Concomitant]
     Active Substance: CEFOTAXIME SODIUM
     Dosage: 105 MILLIGRAM/DOSE
     Dates: start: 20220427, end: 20220428
  4. SODIUM CHLORIDE [Concomitant]
     Active Substance: SODIUM CHLORIDE
     Dosage: 0.8 MILLILITER, QH (0,8ML/H)
     Route: 042
     Dates: start: 20220427, end: 20220428
  5. VAMINOLAC [ALANINE;ARGININE;ASPARTIC ACID;CYSTEINE;GLUTAMIC ACID;GLYCI [Concomitant]
     Dosage: 0.8 MILLILITER, QH (0,8ML/H)
     Route: 042
     Dates: start: 20220427, end: 20220429

REACTIONS (3)
  - Portal vein thrombosis [Not Recovered/Not Resolved]
  - No adverse event [Unknown]
  - Off label use [Unknown]

NARRATIVE: CASE EVENT DATE: 20220429
